FAERS Safety Report 5684055-2 (Version None)
Quarter: 2008Q1

REPORT INFORMATION
  Report Type: 
  Country: None (occurrence: None)
  Receive Date: 20080328
  Receipt Date: 20080318
  Transmission Date: 20080703
  Serious: Yes (Hospitalization)
  Sender: FDA-Public Use
  Company Number: US-AMGEN-STX184354

PATIENT
  Sex: Female

DRUGS (1)
  1. ENBREL [Suspect]
     Indication: RHEUMATOID ARTHRITIS
     Route: 058
     Dates: start: 19980101

REACTIONS (9)
  - BRONCHITIS [None]
  - CATARACT [None]
  - COUGH [None]
  - CYSTITIS [None]
  - KNEE ARTHROPLASTY [None]
  - PNEUMONIA [None]
  - RESTLESS LEGS SYNDROME [None]
  - STAPHYLOCOCCAL INFECTION [None]
  - VIRAL INFECTION [None]
